FAERS Safety Report 16381160 (Version 3)
Quarter: 2020Q1

REPORT INFORMATION
  Report Type: Report from Study
  Country: None (occurrence: US)
  Receive Date: 20190602
  Receipt Date: 20200205
  Transmission Date: 20200409
  Serious: Yes (Other)
  Sender: FDA-Public Use
  Company Number: US-ABBVIE-19K-163-2802993-00

PATIENT
  Age: 77 Year
  Sex: Female
  Weight: 95.34 kg

DRUGS (2)
  1. HUMIRA [Suspect]
     Active Substance: ADALIMUMAB
     Indication: PSORIATIC ARTHROPATHY
     Route: 058
  2. HUMIRA [Suspect]
     Active Substance: ADALIMUMAB
     Indication: PSORIASIS

REACTIONS (6)
  - Stress [Unknown]
  - Infection [Unknown]
  - Therapeutic product effect decreased [Unknown]
  - Skin disorder [Recovering/Resolving]
  - Emotional disorder [Unknown]
  - Nodule [Unknown]

NARRATIVE: CASE EVENT DATE: 201811
